FAERS Safety Report 11204825 (Version 3)
Quarter: 2015Q3

REPORT INFORMATION
  Report Type: Report from Study
  Country: US (occurrence: US)
  Receive Date: 20150622
  Receipt Date: 20150805
  Transmission Date: 20151125
  Serious: Yes (Life-Threatening)
  Sender: FDA-Public Use
  Company Number: US-ROCHE-1508281

PATIENT
  Age: 3 Month
  Sex: Male
  Weight: 3.63 kg

DRUGS (2)
  1. OMALIZUMAB [Suspect]
     Active Substance: OMALIZUMAB
     Indication: PRODUCT USED FOR UNKNOWN INDICATION
     Dosage: ON 30/AUG/2013, HIS MOTHER RECEIVED MOST RECENT DOSE OF OMALIZUMAB 375 MG
     Route: 064
  2. OMALIZUMAB [Suspect]
     Active Substance: OMALIZUMAB
     Route: 063

REACTIONS (18)
  - Cow^s milk intolerance [Unknown]
  - Swelling face [Unknown]
  - Eye oedema [Unknown]
  - Decreased appetite [Unknown]
  - Anaphylactic reaction [Recovered/Resolved]
  - Oral fungal infection [Unknown]
  - Otitis externa [Unknown]
  - Cough [Unknown]
  - Exposure during breast feeding [Unknown]
  - Seborrhoeic dermatitis [Unknown]
  - Anaemia [Recovered/Resolved]
  - Eczema [Unknown]
  - Pyrexia [Unknown]
  - Gastrooesophageal reflux disease [Unknown]
  - Fall [Unknown]
  - Food allergy [Unknown]
  - Nasopharyngitis [Unknown]
  - Head injury [Unknown]

NARRATIVE: CASE EVENT DATE: 201409
